FAERS Safety Report 14145183 (Version 1)
Quarter: 2017Q4

REPORT INFORMATION
  Report Type: Spontaneous
  Country: US (occurrence: US)
  Receive Date: 20171031
  Receipt Date: 20171031
  Transmission Date: 20180321
  Serious: Yes (Hospitalization, Other)
  Sender: FDA-Public Use
  Company Number: US-PFIZER INC-2017461263

PATIENT
  Age: 75 Year
  Sex: Female
  Weight: 53.3 kg

DRUGS (2)
  1. TOVIAZ [Suspect]
     Active Substance: FESOTERODINE FUMARATE
     Indication: MICTURITION URGENCY
  2. TOVIAZ [Suspect]
     Active Substance: FESOTERODINE FUMARATE
     Indication: POLLAKIURIA
     Dosage: 8 MG, 2X/DAY
     Route: 048

REACTIONS (9)
  - Cognitive disorder [Unknown]
  - Joint injury [Recovering/Resolving]
  - Muscular weakness [Unknown]
  - Head injury [Unknown]
  - Asthenia [Recovering/Resolving]
  - Seizure [Unknown]
  - Product use issue [Not Recovered/Not Resolved]
  - Fall [Recovering/Resolving]
  - Gait disturbance [Unknown]

NARRATIVE: CASE EVENT DATE: 201710
